FAERS Safety Report 10561826 (Version 4)
Quarter: 2016Q4

REPORT INFORMATION
  Report Type: Spontaneous
  Country: GB (occurrence: GB)
  Receive Date: 20141104
  Receipt Date: 20161122
  Transmission Date: 20170206
  Serious: Yes (Death, Other)
  Sender: FDA-Public Use
  Company Number: GB-RANBAXY-2014RR-87271

PATIENT
  Age: 37 Year
  Sex: Male

DRUGS (15)
  1. ALCOHOL. [Suspect]
     Active Substance: ALCOHOL
     Indication: PRODUCT USED FOR UNKNOWN INDICATION
     Dosage: UNK
     Route: 048
     Dates: start: 201407, end: 201407
  2. SUBUTEX [Suspect]
     Active Substance: BUPRENORPHINE HYDROCHLORIDE
     Indication: PRODUCT USED FOR UNKNOWN INDICATION
     Dosage: UNK
     Route: 065
  3. BUPRENORPHINE. [Suspect]
     Active Substance: BUPRENORPHINE
     Indication: PRODUCT USED FOR UNKNOWN INDICATION
     Dosage: UNK
     Route: 065
  4. NITRAZEPAM [Suspect]
     Active Substance: NITRAZEPAM
     Dosage: UNK
     Route: 065
     Dates: start: 201407, end: 201407
  5. COCAINE [Suspect]
     Active Substance: COCAINE
     Indication: PRODUCT USED FOR UNKNOWN INDICATION
     Dosage: UNK
     Route: 065
  6. MDMA [Suspect]
     Active Substance: METHYLENEDIOXYMETHAMPHETAMINE
     Dosage: 1.5 TABLETS
     Route: 065
     Dates: start: 20140730, end: 20140730
  7. IBUPROFEN. [Suspect]
     Active Substance: IBUPROFEN
     Indication: PRODUCT USED FOR UNKNOWN INDICATION
     Dosage: UNK
     Route: 065
  8. HEROIN [Suspect]
     Active Substance: DIACETYLMORPHINE
     Indication: PRODUCT USED FOR UNKNOWN INDICATION
     Dosage: UNK
     Route: 051
     Dates: start: 201407, end: 201407
  9. DIAZEPAM. [Suspect]
     Active Substance: DIAZEPAM
     Dosage: 7 TABLETS
     Route: 065
     Dates: start: 20140729, end: 20140729
  10. ALCOHOL. [Suspect]
     Active Substance: ALCOHOL
     Dosage: AROUND 4 CANS OF LAGER
     Route: 048
     Dates: start: 20140729, end: 20140729
  11. MDMA [Suspect]
     Active Substance: METHYLENEDIOXYMETHAMPHETAMINE
     Indication: PRODUCT USED FOR UNKNOWN INDICATION
     Dosage: UNK
     Route: 065
     Dates: start: 201407, end: 201407
  12. MDMA [Suspect]
     Active Substance: METHYLENEDIOXYMETHAMPHETAMINE
     Dosage: ONE TABLET
     Route: 065
     Dates: start: 20140729, end: 20140729
  13. NITRAZEPAM [Suspect]
     Active Substance: NITRAZEPAM
     Indication: PRODUCT USED FOR UNKNOWN INDICATION
     Dosage: 3 TABLETS
     Route: 065
     Dates: start: 20140729, end: 20140729
  14. DIAZEPAM. [Suspect]
     Active Substance: DIAZEPAM
     Indication: PRODUCT USED FOR UNKNOWN INDICATION
     Dosage: THREE 10MG TABLETS
     Route: 065
     Dates: start: 20140730, end: 20140730
  15. DIAZEPAM. [Suspect]
     Active Substance: DIAZEPAM
     Dosage: UNK
     Route: 065
     Dates: start: 201407, end: 201407

REACTIONS (3)
  - Alcohol abuse [Recovered/Resolved]
  - Toxicity to various agents [Fatal]
  - Substance abuse [Recovered/Resolved]

NARRATIVE: CASE EVENT DATE: 201407
